FAERS Safety Report 18269559 (Version 1)
Quarter: 2020Q3

REPORT INFORMATION
  Report Type: Spontaneous
  Country: FR (occurrence: FR)
  Receive Date: 20200915
  Receipt Date: 20200915
  Transmission Date: 20201103
  Serious: Yes (Death, Other)
  Sender: FDA-Public Use
  Company Number: FR-PFIZER INC-2020356649

PATIENT
  Sex: Male
  Weight: 71 kg

DRUGS (6)
  1. FUROSEMIDE. [Concomitant]
     Active Substance: FUROSEMIDE
  2. ALLOPURINOL. [Concomitant]
     Active Substance: ALLOPURINOL
  3. ESIDREX [Concomitant]
     Active Substance: HYDROCHLOROTHIAZIDE
  4. VYNDAQEL [Suspect]
     Active Substance: TAFAMIDIS MEGLUMINE
     Dosage: 20 MG, DAILY
  5. PREVISCAN [FLUINDIONE] [Concomitant]
     Active Substance: FLUINDIONE
  6. DUTASTERIDE/TAMSULOSIN [Concomitant]

REACTIONS (2)
  - Death [Fatal]
  - Cardiac failure chronic [Unknown]

NARRATIVE: CASE EVENT DATE: 20200824
